FAERS Safety Report 23138883 (Version 1)
Quarter: 2023Q4

REPORT INFORMATION
  Report Type: Spontaneous
  Country: US (occurrence: None)
  Receive Date: 20231101
  Receipt Date: 20231101
  Transmission Date: 20240109
  Serious: Yes (Hospitalization)
  Sender: FDA-Public Use
  Company Number: None

PATIENT
  Age: 60 Year
  Sex: Male

DRUGS (2)
  1. HUMIRA [Suspect]
     Active Substance: ADALIMUMAB
     Indication: Rheumatoid arthritis
     Route: 058
     Dates: start: 20211111
  2. REPATHA 140 MG/ML (1=1) [Concomitant]

REACTIONS (2)
  - COVID-19 [None]
  - Rheumatoid arthritis [None]

NARRATIVE: CASE EVENT DATE: 20231031
